FAERS Safety Report 4459212-3 (Version None)
Quarter: 2004Q3

REPORT INFORMATION
  Report Type: 
  Country: None (occurrence: None)
  Receive Date: 20040920
  Receipt Date: 20040920
  Transmission Date: 20050211
  Serious: Yes (Hospitalization)
  Sender: FDA-Public Use
  Company Number: None

PATIENT
  Sex: Male

DRUGS (6)
  1. WARFARIN SODIUM [Suspect]
     Indication: ATRIAL FIBRILLATION
     Dosage: 5 MG QHS, PO
     Route: 048
     Dates: start: 20040501, end: 20040518
  2. HEPARIN [Suspect]
     Indication: ATRIAL FIBRILLATION
     Dosage: 1200 U/HR IV
     Route: 042
     Dates: start: 20040509, end: 20040518
  3. STOTALOL [Concomitant]
  4. HYDROCHLOROTHRZIDE [Concomitant]
  5. LISINOPRIL [Concomitant]
  6. SIMVASTATIN [Concomitant]

REACTIONS (5)
  - ACTIVATED PARTIAL THROMBOPLASTIN TIME PROLONGED [None]
  - DUODENAL ULCER HAEMORRHAGE [None]
  - FAECAL OCCULT BLOOD POSITIVE [None]
  - HAEMOGLOBIN DECREASED [None]
  - INTERNATIONAL NORMALISED RATIO INCREASED [None]
